FAERS Safety Report 21323004 (Version 2)
Quarter: 2022Q4

REPORT INFORMATION
  Report Type: Report from Study
  Country: CA (occurrence: CA)
  Receive Date: 20220912
  Receipt Date: 20221026
  Transmission Date: 20230112
  Serious: Yes (Other)
  Sender: FDA-Public Use
  Company Number: CA-JNJFOC-20220913526

PATIENT
  Age: 60 Year
  Sex: Male

DRUGS (1)
  1. REMICADE [Suspect]
     Active Substance: INFLIXIMAB
     Indication: Colitis ulcerative
     Dosage: ON 19-OCT-2022, THE PATIENT RECEIVED 3RD INFLIXIMAB, RECOMBINANT SOLUTION FOR INFUSION FOR DOSE 500
     Route: 042
     Dates: start: 20220906

REACTIONS (5)
  - Hypoaesthesia [Recovered/Resolved]
  - Dizziness [Unknown]
  - Infusion related reaction [Unknown]
  - General physical health deterioration [Unknown]
  - Frequent bowel movements [Unknown]

NARRATIVE: CASE EVENT DATE: 20220906
